FAERS Safety Report 6646240-2 (Version None)
Quarter: 2010Q1

REPORT INFORMATION
  Report Type: 
  Country: None (occurrence: None)
  Receive Date: 20100323
  Receipt Date: 20100316
  Transmission Date: 20100710
  Serious: Yes (Death)
  Sender: FDA-Public Use
  Company Number: MX-ROCHE-690675

PATIENT
  Age: 21 Year
  Sex: Male
  Weight: 56.5 kg

DRUGS (2)
  1. MIRCERA [Suspect]
     Dosage: FREQUENCY REPORTED AS SINGLE DOSE.
     Route: 058
     Dates: start: 20100305, end: 20100305
  2. FELODIPINO [Concomitant]
     Indication: HYPERTENSION
     Route: 048
     Dates: start: 20050101, end: 20100310

REACTIONS (1)
  - MYOCARDIAL INFARCTION [None]
